FAERS Safety Report 7634851 (Version 8)
Quarter: 2012Q4

REPORT INFORMATION
  Report Type: 
  Country: US (occurrence: US)
  Receive Date: 20101020
  Receipt Date: 20121206
  Transmission Date: 20130627
  Serious: Yes (Hospitalization, Other)
  Sender: FDA-Public Use
  Company Number: US-ROCHE-719266

PATIENT
  Age: 29 Year
  Sex: Female
  Weight: 81.6 kg

DRUGS (5)
  1. ACCUTANE [Suspect]
     Indication: ACNE
     Route: 048
     Dates: start: 19981121, end: 19990420
  2. SERZONE [Concomitant]
     Indication: DEPRESSION
  3. PHENTERMINE [Concomitant]
     Route: 065
  4. ORTHO TRI CYCLEN [Concomitant]
  5. WELLBUTRIN [Concomitant]
     Route: 065

REACTIONS (17)
  - Crohn^s disease [Unknown]
  - Small intestinal obstruction [Unknown]
  - Ileal stenosis [Unknown]
  - Blood pressure increased [Unknown]
  - Proctocolitis [Unknown]
  - Colitis ulcerative [Unknown]
  - Inflammatory bowel disease [Unknown]
  - Cheilitis [Unknown]
  - Epistaxis [Unknown]
  - Skin exfoliation [Unknown]
  - Nasal dryness [Unknown]
  - Dry skin [Unknown]
  - Dyspnoea [Unknown]
  - Hot flush [Unknown]
  - Mouth ulceration [Unknown]
  - Dry eye [Unknown]
  - Depression [Unknown]
